FAERS Safety Report 20304210 (Version 1)
Quarter: 2022Q1

REPORT INFORMATION
  Report Type: Spontaneous
  Country: US (occurrence: US)
  Receive Date: 20220106
  Receipt Date: 20220106
  Transmission Date: 20220423
  Serious: Yes (Other)
  Sender: FDA-Public Use
  Company Number: US-drreddys-LIT/USA/22/0145640

PATIENT
  Age: 70 Year
  Sex: Female

DRUGS (3)
  1. DOXORUBICIN HYDROCHLORIDE [Suspect]
     Active Substance: DOXORUBICIN HYDROCHLORIDE
     Indication: Pleomorphic liposarcoma
  2. OLARATUMAB [Suspect]
     Active Substance: OLARATUMAB
     Indication: Pleomorphic liposarcoma
  3. PAZOPANIB [Suspect]
     Active Substance: PAZOPANIB
     Indication: Pleomorphic liposarcoma

REACTIONS (1)
  - Drug ineffective [Unknown]
